FAERS Safety Report 10304325 (Version 3)
Quarter: 2014Q3

REPORT INFORMATION
  Report Type: Report from Study
  Country: DE (occurrence: DE)
  Receive Date: 20140715
  Receipt Date: 20140820
  Transmission Date: 20150326
  Serious: Yes (Hospitalization)
  Sender: FDA-Public Use
  Company Number: DE-UCBSA-2014000251

PATIENT
  Age: 42 Year
  Sex: Male
  Weight: 60.6 kg

DRUGS (4)
  1. METHOTREXATE [Concomitant]
     Active Substance: METHOTREXATE
     Indication: RHEUMATOID ARTHRITIS
     Dosage: UNK
  2. FRESUBIN [Concomitant]
     Active Substance: AMINO ACIDS\DEXTROSE\ELECTROLYTES NOS\SOYBEAN OIL\VITAMINS
     Indication: CACHEXIA
     Dosage: 250 ML, 3X/DAY (TID)
     Route: 048
     Dates: start: 20140530, end: 20140602
  3. CERTOLIZUMAB PEGOL RA [Suspect]
     Active Substance: CERTOLIZUMAB PEGOL
     Indication: RHEUMATOID ARTHRITIS
     Dosage: UNK
     Route: 058
     Dates: end: 20140527
  4. NACL [Concomitant]
     Active Substance: SODIUM CHLORIDE
     Indication: GASTROENTERITIS
     Dosage: 250 ML, UNK
     Dates: start: 20140527, end: 20140527

REACTIONS (6)
  - Duodenitis [Recovered/Resolved]
  - Vomiting [Unknown]
  - Helicobacter infection [Recovered/Resolved]
  - Abdominal pain [Unknown]
  - Gastroenteritis [Recovered/Resolved]
  - Diarrhoea [Unknown]

NARRATIVE: CASE EVENT DATE: 20140527
